FAERS Safety Report 17075519 (Version 3)
Quarter: 2020Q1

REPORT INFORMATION
  Report Type: Spontaneous
  Country: US (occurrence: US)
  Receive Date: 20191126
  Receipt Date: 20200114
  Transmission Date: 20200409
  Serious: No
  Sender: FDA-Public Use
  Company Number: US-PFIZER INC-2019507205

PATIENT
  Sex: Female

DRUGS (2)
  1. ADVIL [Suspect]
     Active Substance: IBUPROFEN
     Indication: PAIN
     Dosage: 400 MG, UNK
  2. ADVIL [Suspect]
     Active Substance: IBUPROFEN
     Indication: PAIN IN EXTREMITY
     Dosage: UNK, 2X/DAY

REACTIONS (4)
  - Ear pruritus [Recovered/Resolved]
  - Drug hypersensitivity [Recovered/Resolved]
  - Tongue pruritus [Recovered/Resolved]
  - Muscle spasms [Recovered/Resolved]
